FAERS Safety Report 8908237 (Version 1)
Quarter: 2012Q4

REPORT INFORMATION
  Report Type: 
  Country: DE (occurrence: DE)
  Receive Date: 20121114
  Receipt Date: 20121114
  Transmission Date: 20130627
  Serious: Yes (Hospitalization)
  Sender: FDA-Public Use
  Company Number: DE-ASTRAZENECA-2012SE84528

PATIENT
  Age: 69 Year
  Sex: Male

DRUGS (16)
  1. SEROQUEL [Suspect]
     Route: 048
     Dates: start: 20120508, end: 20120509
  2. SEROQUEL [Interacting]
     Route: 048
     Dates: start: 20120510, end: 20120513
  3. SEROQUEL [Interacting]
     Route: 048
     Dates: start: 20120514, end: 20120514
  4. SEROQUEL [Interacting]
     Route: 048
     Dates: start: 20120515, end: 20120517
  5. SEROQUEL [Interacting]
     Route: 048
     Dates: start: 20120518, end: 20120520
  6. SEROQUEL [Interacting]
     Route: 048
     Dates: start: 20120521
  7. VENLAFAXINE [Interacting]
     Route: 048
     Dates: end: 20120507
  8. VENLAFAXINE [Interacting]
     Route: 048
     Dates: start: 20120508, end: 20120512
  9. VENLAFAXINE [Interacting]
     Route: 048
     Dates: start: 20120513, end: 20120516
  10. VENLAFAXINE [Interacting]
     Route: 048
     Dates: start: 20120517, end: 20120522
  11. LORAZEPAM [Concomitant]
     Route: 048
  12. JANUVIA [Concomitant]
     Route: 048
  13. METFORMIN [Concomitant]
     Route: 048
  14. CARMEN [Concomitant]
     Route: 048
  15. TAMSULOSIN [Concomitant]
     Route: 048
  16. MOVICOL [Concomitant]
     Route: 048

REACTIONS (2)
  - Drug interaction [Unknown]
  - Hyponatraemia [Recovered/Resolved]
